FAERS Safety Report 21412523 (Version 1)
Quarter: 2022Q4

REPORT INFORMATION
  Report Type: Spontaneous
  Country: US (occurrence: US)
  Receive Date: 20221005
  Receipt Date: 20221005
  Transmission Date: 20230113
  Serious: No
  Sender: FDA-Public Use
  Company Number: US-INTRA-CELLULAR THERAPIES, INC.-2022ICT00912

PATIENT
  Age: 58 Year
  Sex: Female

DRUGS (2)
  1. CAPLYTA [Suspect]
     Active Substance: LUMATEPERONE
     Dosage: UNK
     Dates: start: 202205, end: 20220905
  2. LITHIUM [Suspect]
     Active Substance: LITHIUM
     Dosage: UNK
     Dates: start: 202206

REACTIONS (2)
  - Urinary tract infection [Unknown]
  - White blood cell count decreased [Unknown]

NARRATIVE: CASE EVENT DATE: 20220101
